FAERS Safety Report 7784178-8 (Version None)
Quarter: 2011Q3

REPORT INFORMATION
  Report Type: 
  Country: None (occurrence: None)
  Receive Date: 20110928
  Receipt Date: 20110915
  Transmission Date: 20111222
  Serious: Yes (Hospitalization, Other)
  Sender: FDA-Public Use
  Company Number: US-ELI_LILLY_AND_COMPANY-US201108005972

PATIENT
  Age: 81 Year
  Sex: Male

DRUGS (2)
  1. FORTEO [Suspect]
     Indication: BONE DISORDER
     Dosage: 20 UG, QD
     Route: 065
  2. FORTEO [Suspect]
     Dosage: 20 UG, QD
     Route: 065

REACTIONS (7)
  - HOSPITALISATION [None]
  - NAUSEA [None]
  - DIARRHOEA [None]
  - FEMUR FRACTURE [None]
  - HIP FRACTURE [None]
  - LUMBAR VERTEBRAL FRACTURE [None]
  - OFF LABEL USE [None]
